FAERS Safety Report 9476655 (Version 1)
Quarter: 2013Q3

REPORT INFORMATION
  Report Type: Spontaneous
  Country: US (occurrence: US)
  Receive Date: 20130826
  Receipt Date: 20130826
  Transmission Date: 20140515
  Serious: No
  Sender: FDA-Public Use
  Company Number: US-BRISTOL-MYERS SQUIBB COMPANY-18704924

PATIENT
  Age: 61 Year
  Sex: Female
  Weight: 68.03 kg

DRUGS (1)
  1. KENALOG INJ [Suspect]
     Dosage: KENALOG-10 OR KENALOG-40

REACTIONS (3)
  - Bronchitis [Unknown]
  - Vomiting [Unknown]
  - Arrhythmia [Unknown]
